FAERS Safety Report 26111163 (Version 1)
Quarter: 2025Q4

REPORT INFORMATION
  Report Type: Spontaneous
  Country: CA (occurrence: CA)
  Receive Date: 20251202
  Receipt Date: 20251202
  Transmission Date: 20260118
  Serious: Yes (Other)
  Sender: AUROBINDO
  Company Number: CA-AUROBINDO-AUR-APL-2025-060501

PATIENT
  Age: 25 Year
  Sex: Male

DRUGS (4)
  1. BRIVARACETAM [Suspect]
     Active Substance: BRIVARACETAM
     Indication: Partial seizures
     Dosage: 75 MILLIGRAM, TWO TIMES A DAY
  2. BRIVARACETAM [Suspect]
     Active Substance: BRIVARACETAM
     Indication: Epilepsy
  3. BRIVARACETAM [Suspect]
     Active Substance: BRIVARACETAM
     Indication: Partial seizures
     Dosage: 50 MILLIGRAM, TWO TIMES A DAY
  4. BRIVARACETAM [Suspect]
     Active Substance: BRIVARACETAM
     Indication: Epilepsy

REACTIONS (1)
  - Seizure [Unknown]
